FAERS Safety Report 22200750 (Version 1)
Quarter: 2023Q2

REPORT INFORMATION
  Report Type: Spontaneous
  Country: US (occurrence: None)
  Receive Date: 20230412
  Receipt Date: 20230412
  Transmission Date: 20230721
  Serious: No
  Sender: FDA-Public Use
  Company Number: 2023A065669

PATIENT
  Sex: Female

DRUGS (1)
  1. TAGRISSO [Suspect]
     Active Substance: OSIMERTINIB
     Indication: Lung neoplasm malignant
     Route: 048

REACTIONS (16)
  - Secretion discharge [Unknown]
  - Fatigue [Unknown]
  - Decreased appetite [Unknown]
  - Nausea [Unknown]
  - Glossodynia [Unknown]
  - Neoplasm [Unknown]
  - Pneumonia [Unknown]
  - Dizziness [Unknown]
  - Arthralgia [Unknown]
  - Dyspnoea [Unknown]
  - Pulmonary mass [Unknown]
  - Cough [Unknown]
  - Vomiting [Unknown]
  - Stomatitis [Unknown]
  - Rash [Unknown]
  - Off label use [Unknown]
